FAERS Safety Report 4903421-3 (Version None)
Quarter: 2006Q1

REPORT INFORMATION
  Report Type: 
  Country: None (occurrence: None)
  Receive Date: 20060203
  Receipt Date: 20060127
  Transmission Date: 20060701
  Serious: Yes (Hospitalization)
  Sender: FDA-Public Use
  Company Number: 2005172167

PATIENT
  Age: 52 Year
  Sex: Male
  Weight: 92 kg

DRUGS (8)
  1. ZOLOFT [Suspect]
     Indication: DEPRESSION
     Dosage: UNKNOWN (1 IN 1 D), ORAL
     Route: 048
     Dates: start: 20050601, end: 20051220
  2. ORAP [Suspect]
     Indication: BIPOLAR I DISORDER
     Dosage: 1 MG (1 IN 1 D), ORAL
     Route: 048
  3. ALL OTHER THERAPEUTIC PRODUCTS (ALL OTHER THERAPEUTIC PRODUCTS) [Concomitant]
  4. COVERSYL (PERINDOPRIL) [Concomitant]
  5. PLAVIX [Concomitant]
  6. ASPIRIN [Concomitant]
  7. ZOCOR [Concomitant]
  8. NEXIUM [Concomitant]

REACTIONS (8)
  - ARRHYTHMIA [None]
  - CARDIAC FAILURE [None]
  - CARDIOMYOPATHY [None]
  - CORONARY ARTERY DISEASE [None]
  - DRUG INTERACTION [None]
  - TACHYCARDIA [None]
  - TROPONIN INCREASED [None]
  - VENTRICULAR EXTRASYSTOLES [None]
